FAERS Safety Report 5722944-0 (Version None)
Quarter: 2008Q2

REPORT INFORMATION
  Report Type: 
  Country: None (occurrence: None)
  Receive Date: 20080429
  Receipt Date: 20080429
  Transmission Date: 20081010
  Serious: Yes (Life-Threatening)
  Sender: FDA-Public Use
  Company Number: None

PATIENT
  Sex: Male
  Weight: 72.5755 kg

DRUGS (1)
  1. ANTI-THYMOCYTE GLOBULIN NOS [Suspect]
     Dosage: ONCE IV
     Route: 042
     Dates: start: 20080427

REACTIONS (2)
  - HYPOXIA [None]
  - RESPIRATORY DISTRESS [None]
